FAERS Safety Report 4338736-3 (Version None)
Quarter: 2004Q2

REPORT INFORMATION
  Report Type: 
  Country: None (occurrence: None)
  Receive Date: 20040409
  Receipt Date: 20040331
  Transmission Date: 20050107
  Serious: Yes (Other)
  Sender: FDA-Public Use
  Company Number: 2004022393

PATIENT
  Sex: Female

DRUGS (1)
  1. SERTRALINE HCL [Suspect]
     Indication: DEPRESSION
     Dosage: 50 MG DAILY, ORAL
     Route: 048
     Dates: start: 20040201, end: 20040201

REACTIONS (3)
  - AGITATION [None]
  - ANXIETY [None]
  - DISSOCIATION [None]
